FAERS Safety Report 24533085 (Version 1)
Quarter: 2024Q4

REPORT INFORMATION
  Report Type: Spontaneous
  Country: TW (occurrence: TW)
  Receive Date: 20241022
  Receipt Date: 20241022
  Transmission Date: 20250115
  Serious: Yes (Death, Hospitalization)
  Sender: ROCHE
  Company Number: TW-ROCHE-10000107708

PATIENT
  Age: 80 Year
  Sex: Male

DRUGS (5)
  1. ATEZOLIZUMAB [Suspect]
     Active Substance: ATEZOLIZUMAB
     Indication: Hepatocellular carcinoma
     Route: 065
  2. BEVACIZUMAB [Suspect]
     Active Substance: BEVACIZUMAB
     Indication: Hepatocellular carcinoma
     Route: 065
  3. METHYLPREDNISOLONE [Concomitant]
     Active Substance: METHYLPREDNISOLONE
  4. REGORAFENIB [Concomitant]
     Active Substance: REGORAFENIB
     Dosage: TOTAL 2 WEEKS
  5. LENVATINIB [Concomitant]
     Active Substance: LENVATINIB
     Dosage: TOTAL 3 WEEKS

REACTIONS (14)
  - Pruritus [Unknown]
  - Rash [Unknown]
  - Dyspnoea [Unknown]
  - Pneumonitis [Unknown]
  - Alpha 1 foetoprotein increased [Not Recovered/Not Resolved]
  - Blood bilirubin increased [Not Recovered/Not Resolved]
  - Alanine aminotransferase increased [Not Recovered/Not Resolved]
  - Disease progression [Unknown]
  - Palmar-plantar erythrodysaesthesia syndrome [Unknown]
  - Diarrhoea [Unknown]
  - Hypertension [Unknown]
  - Ascites [Unknown]
  - Abdominal distension [Unknown]
  - Death [Fatal]
